FAERS Safety Report 5045273-X (Version None)
Quarter: 2006Q3

REPORT INFORMATION
  Report Type: 
  Country: None (occurrence: None)
  Receive Date: 20060705
  Receipt Date: 20060614
  Transmission Date: 20061208
  Serious: Yes (Other)
  Sender: FDA-Public Use
  Company Number: US200606001762

PATIENT
  Age: 59 Year
  Sex: Male

DRUGS (2)
  1. ZYPREXA [Suspect]
     Dosage: 5 MG, DAILY (1/D), ORAL
     Route: 048
     Dates: start: 20020812, end: 20030101
  2. ZYPREXA ZYDIS [Suspect]
     Indication: AGITATION
     Dosage: 5 MG, AS NEEDED, ORAL
     Route: 048
     Dates: start: 20050420

REACTIONS (5)
  - AKATHISIA [None]
  - CONVULSION [None]
  - DIABETES MELLITUS NON-INSULIN-DEPENDENT [None]
  - PLATELET COUNT DECREASED [None]
  - SEDATION [None]
